FAERS Safety Report 14957000 (Version 1)
Quarter: 2018Q2

REPORT INFORMATION
  Report Type: Spontaneous
  Country: JP (occurrence: JP)
  Receive Date: 20180531
  Receipt Date: 20180531
  Transmission Date: 20180711
  Serious: Yes (Hospitalization)
  Sender: FDA-Public Use
  Company Number: JP-SAKK-BA201803018001

PATIENT
  Age: 87 Year
  Sex: Female

DRUGS (5)
  1. CELECOX [Concomitant]
     Active Substance: CELECOXIB
     Indication: RHEUMATIC DISORDER
     Dosage: 100 MG, BID
     Route: 048
  2. CARERAM [Concomitant]
     Active Substance: IGURATIMOD
     Indication: RHEUMATIC DISORDER
     Dosage: 25 MG, 1X
     Route: 048
  3. KEVZARA [Suspect]
     Active Substance: SARILUMAB
     Indication: RHEUMATIC DISORDER
     Dosage: 200 MG, 1X
     Route: 058
     Dates: start: 20180407, end: 20180407
  4. PREDNISOLONE. [Concomitant]
     Active Substance: PREDNISOLONE
     Indication: RHEUMATIC DISORDER
     Dosage: 5 MG, BID
     Route: 048
  5. AIMIX [Concomitant]
     Active Substance: AMLODIPINE BESYLATE\IRBESARTAN
     Indication: HYPERTENSION
     Dosage: UNK UNK, QD
     Route: 048

REACTIONS (1)
  - Fall [Unknown]

NARRATIVE: CASE EVENT DATE: 201804
